FAERS Safety Report 21559824 (Version 4)
Quarter: 2025Q1

REPORT INFORMATION
  Report Type: Spontaneous
  Country: US (occurrence: US)
  Receive Date: 20221107
  Receipt Date: 20250106
  Transmission Date: 20250409
  Serious: No
  Sender: PFIZER
  Company Number: US-PFIZER INC-PV202200096697

PATIENT
  Age: 72 Year
  Sex: Female

DRUGS (11)
  1. XELJANZ XR [Suspect]
     Active Substance: TOFACITINIB CITRATE
  2. XELJANZ XR [Suspect]
     Active Substance: TOFACITINIB CITRATE
     Dates: start: 202412
  3. ATORVASTATIN [Concomitant]
     Active Substance: ATORVASTATIN
  4. ALENDRONATE SODIUM [Concomitant]
     Active Substance: ALENDRONATE SODIUM
  5. CALCIUM [Concomitant]
     Active Substance: CALCIUM
  6. CYCLOBENZAPRINE [Concomitant]
     Active Substance: CYCLOBENZAPRINE
  7. FUROSEMIDE [Concomitant]
     Active Substance: FUROSEMIDE
  8. GLIPIZIDE [Concomitant]
     Active Substance: GLIPIZIDE
  9. METOPROLOL [Concomitant]
     Active Substance: METOPROLOL
  10. VALSARTAN [Concomitant]
     Active Substance: VALSARTAN
  11. VITAMIN D2 [Concomitant]
     Active Substance: ERGOCALCIFEROL

REACTIONS (6)
  - Cardiac disorder [Unknown]
  - Arthritis [Unknown]
  - Pain [Not Recovered/Not Resolved]
  - Memory impairment [Unknown]
  - Seasonal allergy [Unknown]
  - COVID-19 [Not Recovered/Not Resolved]
